FAERS Safety Report 5356616-1 (Version None)
Quarter: 2007Q2

REPORT INFORMATION
  Report Type: 
  Country: None (occurrence: None)
  Receive Date: 20070614
  Receipt Date: 20070606
  Transmission Date: 20071010
  Serious: Yes (Other)
  Sender: FDA-Public Use
  Company Number: PHBS2007JP09644

PATIENT

DRUGS (2)
  1. CYCLOSPORINE [Suspect]
     Indication: MYELODYSPLASTIC SYNDROME
     Route: 065
  2. ATGAM [Suspect]
     Route: 065

REACTIONS (2)
  - THROMBOTIC MICROANGIOPATHY [None]
  - TRANSFUSION-RELATED ACUTE LUNG INJURY [None]
